FAERS Safety Report 8379728-7 (Version None)
Quarter: 2012Q2

REPORT INFORMATION
  Report Type: 
  Country: None (occurrence: None)
  Receive Date: 20120523
  Receipt Date: 20120516
  Transmission Date: 20120825
  Serious: Yes (Other)
  Sender: FDA-Public Use
  Company Number: GB-SANOFI-AVENTIS-2012SA035137

PATIENT
  Age: 70 Year
  Sex: Female

DRUGS (6)
  1. WARFARIN SODIUM [Concomitant]
     Indication: ATRIAL FIBRILLATION
     Dosage: 4-5MG DAILY.
  2. CARBIMAZOLE [Concomitant]
     Indication: HYPERTHYROIDISM
     Dosage: DOSE WAS REPORTED AS 5. UNITS NOT PROVIDED.
  3. MULTAQ [Suspect]
     Indication: ATRIAL FIBRILLATION
     Dosage: DOSE WAS REPORTED AS 400. UNITS NOT PROVIDED.
     Route: 065
     Dates: start: 20100601, end: 20120201
  4. PROPRANOLOL [Concomitant]
     Indication: ATRIAL FIBRILLATION
     Dosage: DOSE WAS REPORTED AS 10. UNITS NOT PROVIDED.
  5. PERINDOPRIL ERBUMINE [Concomitant]
     Indication: CARDIOVASCULAR EVENT PROPHYLAXIS
     Dosage: DOSE WAS REPORTED AS 6. UNITS NOT PROVIDED.
  6. FERROUS FUMARATE [Concomitant]
     Dosage: DOSE WAS REPORTED AS 305. UNITS NOT PROVIDED.

REACTIONS (2)
  - HYPERTHYROIDISM [None]
  - ATRIAL FIBRILLATION [None]
